FAERS Safety Report 15686834 (Version 2)
Quarter: 2019Q1

REPORT INFORMATION
  Report Type: Report from Study
  Country: US (occurrence: US)
  Receive Date: 20181204
  Receipt Date: 20190111
  Transmission Date: 20190417
  Serious: Yes (Other)
  Sender: FDA-Public Use
  Company Number: PHEH2018US050096

PATIENT
  Age: 63 Year
  Sex: Male

DRUGS (2)
  1. JADENU [Suspect]
     Active Substance: DEFERASIROX
     Indication: PRODUCT USED FOR UNKNOWN INDICATION
     Dosage: 1080 MG, QD
     Route: 048
     Dates: start: 20180110, end: 20181116
  2. JADENU [Suspect]
     Active Substance: DEFERASIROX
     Dosage: 3 DF (360 MG), QD
     Route: 048
     Dates: start: 20181130

REACTIONS (3)
  - Renal failure [Unknown]
  - Dehydration [Unknown]
  - Acute kidney injury [Recovered/Resolved]

NARRATIVE: CASE EVENT DATE: 20181116
